FAERS Safety Report 11327951 (Version 2)
Quarter: 2015Q3

REPORT INFORMATION
  Report Type: Spontaneous
  Country: US (occurrence: US)
  Receive Date: 20150731
  Receipt Date: 20150910
  Transmission Date: 20151125
  Serious: No
  Sender: FDA-Public Use
  Company Number: US-PFIZER INC-2015245089

PATIENT
  Age: 52 Year
  Sex: Female
  Weight: 68 kg

DRUGS (1)
  1. LYRICA [Suspect]
     Active Substance: PREGABALIN
     Indication: FIBROMYALGIA
     Dosage: 400 MG, 1X/DAY (AT NIGHT)
     Dates: start: 201501

REACTIONS (5)
  - Confusional state [Not Recovered/Not Resolved]
  - Feeling abnormal [Not Recovered/Not Resolved]
  - Therapeutic response unexpected [Unknown]
  - Somnolence [Not Recovered/Not Resolved]
  - Pre-existing condition improved [Unknown]
